FAERS Safety Report 5636307-X (Version None)
Quarter: 2008Q1

REPORT INFORMATION
  Report Type: 
  Country: None (occurrence: None)
  Receive Date: 20080225
  Receipt Date: 20080219
  Transmission Date: 20080703
  Serious: Yes (Death)
  Sender: FDA-Public Use
  Company Number: CH-BRISTOL-MYERS SQUIBB COMPANY-14087811

PATIENT
  Age: 35 Year
  Sex: Male

DRUGS (4)
  1. EFAVIRENZ [Suspect]
     Indication: HIV INFECTION
  2. EFAVIRENZ [Suspect]
     Indication: PNEUMOCYSTIS JIROVECI PNEUMONIA
  3. TENOFOVIR DISOPROXIL FUMARATE [Suspect]
  4. ZIDOVUDINE [Suspect]

REACTIONS (1)
  - HISTIOCYTOSIS HAEMATOPHAGIC [None]
